FAERS Safety Report 24623974 (Version 3)
Quarter: 2024Q4

REPORT INFORMATION
  Report Type: Spontaneous
  Country: JP (occurrence: JP)
  Receive Date: 20241115
  Receipt Date: 20241211
  Transmission Date: 20250115
  Serious: Yes (Hospitalization, Other)
  Sender: PFIZER
  Company Number: JP-MLMSERVICE-20241101-PI247921-00270-1

PATIENT
  Age: 56 Month
  Sex: Male
  Weight: 18 kg

DRUGS (6)
  1. INFLIXIMAB [Suspect]
     Active Substance: INFLIXIMAB
     Indication: Kawasaki^s disease
     Dosage: ADMINISTERED ON DAY 3
  2. METHYLPREDNISOLONE SODIUM SUCCINATE [Suspect]
     Active Substance: METHYLPREDNISOLONE SODIUM SUCCINATE
     Indication: Kawasaki^s disease
     Dosage: ON THE 3RD DAY OF HOSPITALIZATION (PULSE)
     Route: 042
  3. CYCLOSPORINE [Suspect]
     Active Substance: CYCLOSPORINE
     Indication: Kawasaki^s disease
     Dosage: ON THE 3RD DAY OF HOSPITALIZATION
  4. PREDNISOLONE [Suspect]
     Active Substance: PREDNISOLONE
     Indication: Kawasaki^s disease
     Dosage: ON THE 3RD DAY OF HOSPITALIZATION
     Route: 048
  5. PREDNISOLONE [Suspect]
     Active Substance: PREDNISOLONE
     Dosage: ON THE 3RD DAY OF HOSPITALIZATION
     Route: 048
  6. ASPIRIN [Concomitant]
     Active Substance: ASPIRIN
     Indication: Kawasaki^s disease
     Dosage: ON THE 6TH DAY OF FEVER AND THE AMOUNT OF ASA WAS REDUCED ON THE 6TH DAY OF HOSPITALIZATION.

REACTIONS (2)
  - Latent tuberculosis [Recovered/Resolved]
  - Off label use [Unknown]
